FAERS Safety Report 7557264-5 (Version None)
Quarter: 2011Q2

REPORT INFORMATION
  Report Type: 
  Country: None (occurrence: None)
  Receive Date: 20110620
  Receipt Date: 20050214
  Transmission Date: 20111010
  Serious: Yes (Death, Hospitalization)
  Sender: FDA-Public Use
  Company Number: PHRM2005FR00673

PATIENT
  Age: 63 Year
  Sex: Female

DRUGS (7)
  1. PHENYTOIN [Suspect]
     Route: 048
  2. BECLOMETHASONE DIPROPIONATE [Suspect]
     Dates: start: 20030401, end: 20031210
  3. LOVENOX [Suspect]
     Dosage: 4 KIU
     Route: 058
     Dates: start: 20031101, end: 20031210
  4. FORADIL [Suspect]
     Dates: start: 20030401, end: 20031210
  5. OXEOL [Suspect]
     Dosage: 1 DF, QD
     Route: 048
     Dates: start: 20031130, end: 20031202
  6. PHENYTOIN [Suspect]
     Indication: EPILEPSY
     Dosage: 100 MG, TID
     Route: 048
     Dates: start: 20031101, end: 20031208
  7. OMEPRAZOLE [Suspect]
     Dosage: 20 MG
     Route: 048
     Dates: start: 20031001, end: 20031210

REACTIONS (14)
  - DEATH [None]
  - PRURITUS [None]
  - DRUG RASH WITH EOSINOPHILIA AND SYSTEMIC SYMPTOMS [None]
  - RASH MACULO-PAPULAR [None]
  - TRANSAMINASES INCREASED [None]
  - BLISTER [None]
  - TOXIC SKIN ERUPTION [None]
  - HYPERPYREXIA [None]
  - FACE OEDEMA [None]
  - MUCOSA VESICLE [None]
  - LYMPHADENOPATHY [None]
  - EPILEPSY [None]
  - ENANTHEMA [None]
  - HYPOVENTILATION [None]
